APPROVED DRUG PRODUCT: ENTECAVIR
Active Ingredient: ENTECAVIR
Strength: 1MG
Dosage Form/Route: TABLET;ORAL
Application: A216857 | Product #002 | TE Code: AB
Applicant: CONBA USA INC
Approved: Dec 23, 2024 | RLD: No | RS: No | Type: RX